FAERS Safety Report 12963661 (Version 2)
Quarter: 2017Q1

REPORT INFORMATION
  Report Type: Spontaneous
  Country: US (occurrence: US)
  Receive Date: 20161122
  Receipt Date: 20170221
  Transmission Date: 20170428
  Serious: No
  Sender: FDA-Public Use
  Company Number: US-JNJFOC-20161110396

PATIENT
  Age: 27 Year
  Sex: Male
  Weight: 94.8 kg

DRUGS (3)
  1. INVEGA SUSTENNA [Suspect]
     Active Substance: PALIPERIDONE PALMITATE
     Indication: SCHIZOAFFECTIVE DISORDER
     Route: 030
     Dates: start: 20161013
  2. INVEGA SUSTENNA [Suspect]
     Active Substance: PALIPERIDONE PALMITATE
     Indication: SCHIZOAFFECTIVE DISORDER
     Route: 030
     Dates: start: 20161020
  3. INVEGA SUSTENNA [Suspect]
     Active Substance: PALIPERIDONE PALMITATE
     Indication: SCHIZOAFFECTIVE DISORDER
     Route: 030

REACTIONS (13)
  - Speech disorder [Recovered/Resolved]
  - Gait disturbance [Recovered/Resolved]
  - Anxiety [Unknown]
  - Blood pressure increased [Recovered/Resolved]
  - Panic attack [Unknown]
  - Movement disorder [Recovered/Resolved]
  - Muscle rigidity [Unknown]
  - Syncope [Recovered/Resolved]
  - Epistaxis [Recovered/Resolved]
  - Hyperventilation [Recovered/Resolved]
  - Delusion [Not Recovered/Not Resolved]
  - Thinking abnormal [Unknown]
  - Eye movement disorder [Recovered/Resolved]

NARRATIVE: CASE EVENT DATE: 20161027
